FAERS Safety Report 9237286 (Version 1)
Quarter: 2013Q2

REPORT INFORMATION
  Report Type: Spontaneous
  Country: FR (occurrence: FR)
  Receive Date: 20130417
  Receipt Date: 20130417
  Transmission Date: 20140414
  Serious: Yes (Other)
  Sender: FDA-Public Use
  Company Number: FR-VERTEX PHARMACEUTICALS INC.-2013-004332

PATIENT
  Sex: Male
  Weight: 70 kg

DRUGS (4)
  1. INCIVO [Suspect]
     Indication: HEPATITIS C
     Dosage: 2 DF, TID
     Route: 048
     Dates: start: 20130201, end: 20130304
  2. PEGASYS [Suspect]
     Indication: HEPATITIS C
     Dosage: DOSAGE FORM: INJECTION
     Route: 058
     Dates: start: 20130201
  3. COPEGUS [Suspect]
     Indication: HEPATITIS C
     Dosage: DOSAGE FORM: UNSPECIFIED, DOSE - 200 MG (2-0-3)
     Route: 048
     Dates: start: 20130201
  4. AVLOCARDYL [Concomitant]
     Indication: TREMOR
     Dosage: UNK, BID
     Route: 048

REACTIONS (4)
  - Rash [Recovered/Resolved]
  - Rash pustular [Recovered/Resolved]
  - Drug ineffective [Unknown]
  - Anaemia [Unknown]
